FAERS Safety Report 5516187-3 (Version None)
Quarter: 2007Q4

REPORT INFORMATION
  Report Type: 
  Country: None (occurrence: None)
  Receive Date: 20071114
  Receipt Date: 20070105
  Transmission Date: 20080405
  Serious: No
  Sender: FDA-Public Use
  Company Number: A0634065A

PATIENT
  Age: 48 Year
  Sex: Female

DRUGS (1)
  1. COMMIT [Suspect]
     Dates: start: 20061229

REACTIONS (5)
  - ANXIETY [None]
  - NERVOUSNESS [None]
  - PSYCHOMOTOR HYPERACTIVITY [None]
  - RESTLESSNESS [None]
  - TENSION [None]
